FAERS Safety Report 7158052-4 (Version None)
Quarter: 2010Q4

REPORT INFORMATION
  Report Type: 
  Country: None (occurrence: None)
  Receive Date: 20101214
  Receipt Date: 20100408
  Transmission Date: 20110411
  Serious: No
  Sender: FDA-Public Use
  Company Number: US-ASTRAZENECA-2010SE15525

PATIENT
  Age: 41 Year
  Sex: Female
  Weight: 68.9 kg

DRUGS (1)
  1. CRESTOR [Suspect]
     Route: 048
     Dates: start: 20100328

REACTIONS (3)
  - ABDOMINAL DISCOMFORT [None]
  - FAECES DISCOLOURED [None]
  - MUCOUS STOOLS [None]
